FAERS Safety Report 20662633 (Version 1)
Quarter: 2022Q1

REPORT INFORMATION
  Report Type: Spontaneous
  Country: US (occurrence: None)
  Receive Date: 20220331
  Receipt Date: 20220331
  Transmission Date: 20220423
  Serious: No
  Sender: FDA-Public Use
  Company Number: None

PATIENT
  Age: 27 Year
  Sex: Male
  Weight: 56.7 kg

DRUGS (1)
  1. HUMIRA [Suspect]
     Active Substance: ADALIMUMAB
     Indication: Hidradenitis
     Dosage: INJECT 80 MG SUBCUTANEOUSLY EVERY 2 WEEKS STARTING ON DAY 29  AS DIRECTED.     ?
     Route: 058
     Dates: start: 202107

REACTIONS (1)
  - Localised infection [None]
